FAERS Safety Report 5334251-9 (Version None)
Quarter: 2007Q2

REPORT INFORMATION
  Report Type: 
  Country: None (occurrence: None)
  Receive Date: 20070523
  Receipt Date: 20070523
  Transmission Date: 20071010
  Serious: Yes (Other)
  Sender: FDA-Public Use
  Company Number: None

PATIENT
  Sex: Female
  Weight: 48.9885 kg

DRUGS (2)
  1. SERTRALINE [Suspect]
     Indication: ANXIETY
     Dosage: 12.5MG BID PO
     Route: 048
     Dates: start: 20070504, end: 20070513
  2. SERTRALINE [Suspect]
     Indication: DEPRESSION
     Dosage: 12.5MG BID PO
     Route: 048
     Dates: start: 20070504, end: 20070513

REACTIONS (10)
  - ABDOMINAL DISCOMFORT [None]
  - CHILLS [None]
  - DEPRESSION [None]
  - DIZZINESS [None]
  - HEADACHE [None]
  - HOT FLUSH [None]
  - MUSCLE TWITCHING [None]
  - NAUSEA [None]
  - NERVOUSNESS [None]
  - PALPITATIONS [None]
